FAERS Safety Report 7339929-3 (Version None)
Quarter: 2011Q1

REPORT INFORMATION
  Report Type: 
  Country: None (occurrence: None)
  Receive Date: 20110309
  Receipt Date: 20110223
  Transmission Date: 20110831
  Serious: Yes (Hospitalization)
  Sender: FDA-Public Use
  Company Number: DE-RANBAXY-2011RR-42420

PATIENT

DRUGS (1)
  1. CEFACLOR 500MG BASICS KAPSELN [Suspect]
     Indication: BRONCHITIS
     Dosage: UNK
     Dates: start: 20101101

REACTIONS (5)
  - PRURITUS [None]
  - DYSPNOEA [None]
  - JOINT SWELLING [None]
  - DIZZINESS [None]
  - URTICARIA [None]
